FAERS Safety Report 20217491 (Version 3)
Quarter: 2022Q3

REPORT INFORMATION
  Report Type: Spontaneous
  Country: JP (occurrence: JP)
  Receive Date: 20211222
  Receipt Date: 20220926
  Transmission Date: 20221027
  Serious: Yes (Hospitalization, Other)
  Sender: FDA-Public Use
  Company Number: JP-BRISTOL-MYERS SQUIBB COMPANY-BMS-2021-136856

PATIENT
  Age: 9 Decade
  Sex: Male

DRUGS (1)
  1. HYDREA [Suspect]
     Active Substance: HYDROXYUREA
     Indication: Chronic myelomonocytic leukaemia
     Dosage: UNKNOWN
     Route: 065

REACTIONS (2)
  - Acute kidney injury [Unknown]
  - Intestinal ulcer [Unknown]
